FAERS Safety Report 5033396-0 (Version None)
Quarter: 2006Q2

REPORT INFORMATION
  Report Type: 
  Country: None (occurrence: None)
  Receive Date: 20060512
  Receipt Date: 20060322
  Transmission Date: 20061013
  Serious: No
  Sender: FDA-Public Use
  Company Number: SUS1-2006-00321

PATIENT

DRUGS (1)
  1. FOSRENOL [Suspect]
     Dosage: 3000 MG DAILY

REACTIONS (1)
  - VOMITING [None]
